FAERS Safety Report 7472925-4 (Version None)
Quarter: 2011Q1

REPORT INFORMATION
  Report Type: 
  Country: None (occurrence: None)
  Receive Date: 20110302
  Receipt Date: 20101011
  Transmission Date: 20110831
  Serious: Yes (Hospitalization)
  Sender: FDA-Public Use
  Company Number: 163-21880-10100942

PATIENT
  Age: 50 Year
  Sex: Male

DRUGS (3)
  1. REVLIMID [Suspect]
     Indication: MULTIPLE MYELOMA
     Dosage: 25 MG, DAILY 21 DAYS ON 7 DAYS OFF, PO; 10 MG, 1 IN 1 D, PO
     Route: 048
     Dates: start: 20101001
  2. REVLIMID [Suspect]
     Indication: MULTIPLE MYELOMA
     Dosage: 25 MG, DAILY 21 DAYS ON 7 DAYS OFF, PO; 10 MG, 1 IN 1 D, PO
     Route: 048
     Dates: start: 20100901
  3. COUMADIN [Concomitant]

REACTIONS (2)
  - STOMATITIS [None]
  - INTERNATIONAL NORMALISED RATIO INCREASED [None]
